FAERS Safety Report 15793436 (Version 1)
Quarter: 2019Q1

REPORT INFORMATION
  Report Type: Spontaneous
  Country: US (occurrence: US)
  Receive Date: 20190104
  Receipt Date: 20190104
  Transmission Date: 20190417
  Serious: No
  Sender: FDA-Public Use
  Company Number: None

PATIENT
  Age: 76 Year
  Sex: Male

DRUGS (1)
  1. EZETIMIBE 10 MG/SIMVA [Suspect]
     Active Substance: EZETIMIBE\SIMVASTATIN
     Route: 048

REACTIONS (1)
  - Pruritus [None]

NARRATIVE: CASE EVENT DATE: 20181231
